FAERS Safety Report 5048085-6 (Version None)
Quarter: 2006Q3

REPORT INFORMATION
  Report Type: 
  Country: None (occurrence: None)
  Receive Date: 20060705
  Receipt Date: 20060616
  Transmission Date: 20061208
  Serious: Yes (Death)
  Sender: FDA-Public Use
  Company Number: US200606001420

PATIENT
  Age: 67 Year
  Sex: Female

DRUGS (2)
  1. HUMULIN R [Suspect]
  2. ZYPREXA [Suspect]

REACTIONS (3)
  - CARDIOVASCULAR DISORDER [None]
  - DIABETES MELLITUS [None]
  - SLEEP APNOEA SYNDROME [None]
